FAERS Safety Report 5014553-6 (Version None)
Quarter: 2006Q2

REPORT INFORMATION
  Report Type: 
  Country: None (occurrence: None)
  Receive Date: 20060531
  Receipt Date: 20060424
  Transmission Date: 20061013
  Serious: Yes (Hospitalization)
  Sender: FDA-Public Use
  Company Number: ES-NOVOPROD-252716

PATIENT
  Age: 62 Year
  Sex: Female

DRUGS (1)
  1. LEVEMIR [Suspect]
     Indication: INSULIN-REQUIRING TYPE II DIABETES MELLITUS
     Dosage: 20 IU, QD 14IU MORNING AND 6 IU EVENING
     Dates: start: 20060401, end: 20060421

REACTIONS (4)
  - ERYTHEMA [None]
  - INJECTION SITE REACTION [None]
  - LIPOHYPERTROPHY [None]
  - PAIN OF SKIN [None]
